FAERS Safety Report 17529191 (Version 1)
Quarter: 2020Q1

REPORT INFORMATION
  Report Type: Spontaneous
  Country: ES (occurrence: ES)
  Receive Date: 20200312
  Receipt Date: 20200312
  Transmission Date: 20200409
  Serious: Yes (Hospitalization)
  Sender: FDA-Public Use
  Company Number: ES-TEVA-2020-ES-1196393

PATIENT
  Age: 72 Year
  Sex: Female

DRUGS (4)
  1. REMSIMA 100 MG POLVO PARA CONCENTRADO PARA SOLUCION PARA PERFUSION 1 V [Interacting]
     Active Substance: INFLIXIMAB
     Indication: PSORIATIC ARTHROPATHY
     Route: 058
     Dates: start: 20171009, end: 20190213
  2. LEFLUNOMIDA (7414A) [Suspect]
     Active Substance: LEFLUNOMIDE
     Indication: PSORIATIC ARTHROPATHY
     Dosage: 10 MG 24 HOURS
     Route: 048
     Dates: start: 201701
  3. METILPREDNISOLONA (888A) [Interacting]
     Active Substance: METHYLPREDNISOLONE
     Indication: PSORIATIC ARTHROPATHY
     Route: 048
     Dates: start: 20190213
  4. METILPREDNISOLONA (888A) [Concomitant]
     Active Substance: METHYLPREDNISOLONE
     Indication: PSORIATIC ARTHROPATHY
     Dosage: 2 GRAM 24 HOURS
     Route: 048

REACTIONS (2)
  - Pneumonia legionella [Recovered/Resolved]
  - Drug interaction [Unknown]

NARRATIVE: CASE EVENT DATE: 20190214
